FAERS Safety Report 6915298-5 (Version None)
Quarter: 2010Q3

REPORT INFORMATION
  Report Type: 
  Country: None (occurrence: None)
  Receive Date: 20100809
  Receipt Date: 20090930
  Transmission Date: 20110219
  Serious: No
  Sender: FDA-Public Use
  Company Number: US-ABBOTT-09P-163-0600547-00

PATIENT
  Age: 77 Year
  Sex: Female

DRUGS (6)
  1. DEPAKOTE ER [Suspect]
     Indication: BIPOLAR DISORDER
     Dosage: TAKES ON FULL STOMACH IN EVENING
     Route: 048
     Dates: start: 20090925
  2. LITHIUM [Concomitant]
     Indication: BIPOLAR DISORDER
     Dosage: 450MG IN AM AND   300MG IN PM
     Route: 048
     Dates: start: 19890101, end: 20090901
  3. LITHIUM [Concomitant]
     Dosage: 300MG TAB WAS STOPPED, AND WEANING OFF OF MEDICATION SLOWLY.
     Route: 048
     Dates: start: 20090901
  4. LISINOPRIL [Concomitant]
     Indication: HYPERTENSION
  5. NORVASC [Concomitant]
     Indication: HYPERTENSION
  6. SYNTHROID [Concomitant]
     Indication: HYPOTHYROIDISM

REACTIONS (2)
  - CRYING [None]
  - HEADACHE [None]
